FAERS Safety Report 7030325-5 (Version None)
Quarter: 2010Q4

REPORT INFORMATION
  Report Type: 
  Country: None (occurrence: None)
  Receive Date: 20101001
  Receipt Date: 20100924
  Transmission Date: 20110411
  Serious: Yes (Hospitalization)
  Sender: FDA-Public Use
  Company Number: B0676382A

PATIENT
  Age: 48 Year
  Sex: Female

DRUGS (2)
  1. ERYTHROMYCIN [Suspect]
     Indication: LOWER RESPIRATORY TRACT INFECTION
  2. TACROLIMUS [Suspect]

REACTIONS (4)
  - DRUG INTERACTION [None]
  - DRUG TOXICITY [None]
  - HAEMOLYTIC URAEMIC SYNDROME [None]
  - LOWER RESPIRATORY TRACT INFECTION [None]
